FAERS Safety Report 13355458 (Version 1)
Quarter: 2017Q1

REPORT INFORMATION
  Report Type: Spontaneous
  Country: US (occurrence: US)
  Receive Date: 20170321
  Receipt Date: 20170321
  Transmission Date: 20170429
  Serious: Yes (Life-Threatening, Disabling, Other)
  Sender: FDA-Public Use
  Company Number: None

PATIENT
  Age: 78 Year
  Sex: Female
  Weight: 61.74 kg

DRUGS (6)
  1. LEVOTHYROXINE 100MCG TAB SAN AND 88MCG TAB SAN [Suspect]
     Active Substance: LEVOTHYROXINE SODIUM
     Indication: THYROID DISORDER
     Dosage: ?          QUANTITY:-/ 725A; OBEY;?
     Route: 048
     Dates: start: 20160701, end: 20160926
  2. OSTEO BIFLEX [Concomitant]
     Active Substance: CHONDROITIN SULFATE A\GLUCOSAMINE
  3. ALEVE [Concomitant]
     Active Substance: NAPROXEN SODIUM
  4. CENTRUM SILVER MULTIVITIMAN [Concomitant]
  5. CRITCAL + D3 [Concomitant]
  6. ESTRADIOL. [Concomitant]
     Active Substance: ESTRADIOL

REACTIONS (20)
  - Overdose [None]
  - Erythema [None]
  - Headache [None]
  - Flatulence [None]
  - Asthenia [None]
  - Malaise [None]
  - Palpitations [None]
  - Rash pruritic [None]
  - Peripheral swelling [None]
  - Product substitution issue [None]
  - Nervousness [None]
  - Faeces soft [None]
  - Gait disturbance [None]
  - Dysphonia [None]
  - Alopecia [None]
  - Insomnia [None]
  - Tremor [None]
  - Speech disorder [None]
  - Diarrhoea [None]
  - Muscle spasms [None]

NARRATIVE: CASE EVENT DATE: 201607
